FAERS Safety Report 8786416 (Version 3)
Quarter: 2019Q1

REPORT INFORMATION
  Report Type: Spontaneous
  Country: JP (occurrence: JP)
  Receive Date: 20120914
  Receipt Date: 20190117
  Transmission Date: 20190418
  Serious: Yes (Hospitalization)
  Sender: FDA-Public Use
  Company Number: JP-FRI-1000038543

PATIENT
  Age: 92 Year
  Sex: Female
  Weight: 48 kg

DRUGS (9)
  1. FLUITRAN [Suspect]
     Active Substance: TRICHLORMETHIAZIDE
     Indication: HYPERTENSION
     Dosage: 1 DF, QD
     Route: 065
     Dates: end: 20120812
  2. YOKUKAN-SAN [Suspect]
     Active Substance: UNSPECIFIED INGREDIENT
     Indication: DEMENTIA ALZHEIMER^S TYPE
     Dosage: 2.5 G, BID
     Route: 048
     Dates: start: 20120807, end: 20120817
  3. VOLTMIE [Concomitant]
     Active Substance: LIPASE\PROTEASE
     Indication: CHRONIC GASTRITIS
     Dosage: 2 DF, TID
     Dates: end: 20120812
  4. CEREKINON [Concomitant]
     Active Substance: TRIMEBUTINE
     Indication: CHRONIC GASTRITIS
     Dosage: 3 DF, TID
     Dates: end: 20120812
  5. LIPOVAS [Concomitant]
     Active Substance: PRAVASTATIN SODIUM
     Indication: DYSLIPIDAEMIA
     Dosage: 5 MG, QD
     Dates: end: 20120812
  6. DONEPEZIL. [Suspect]
     Active Substance: DONEPEZIL
     Indication: MEMORY IMPAIRMENT
     Dosage: 3 MG, EVERY
     Route: 065
     Dates: start: 20120730, end: 20120813
  7. ALUSA [Concomitant]
     Active Substance: ALDIOXA
     Indication: CHRONIC GASTRITIS
     Dosage: 3 DF, TID
     Dates: end: 20120812
  8. DIOVAN [Concomitant]
     Active Substance: VALSARTAN
     Indication: HYPERTENSION
     Dosage: 80 MG, QD
     Dates: end: 20120812
  9. MEMANTINE HCL UNK [Suspect]
     Active Substance: MEMANTINE HYDROCHLORIDE
     Indication: DEMENTIA ALZHEIMER^S TYPE
     Dosage: 5 MG, QD
     Route: 048
     Dates: start: 20120807, end: 20120816

REACTIONS (8)
  - Decreased appetite [Unknown]
  - Gait disturbance [Unknown]
  - Blood creatine phosphokinase increased [Unknown]
  - Muscle spasms [Unknown]
  - Hyponatraemia [Unknown]
  - Hypokalaemia [Unknown]
  - Altered state of consciousness [Unknown]
  - Blood chloride decreased [Unknown]

NARRATIVE: CASE EVENT DATE: 20120816
